FAERS Safety Report 8529525-4 (Version None)
Quarter: 2012Q3

REPORT INFORMATION
  Report Type: 
  Country: None (occurrence: None)
  Receive Date: 20120723
  Receipt Date: 20120713
  Transmission Date: 20120928
  Serious: Yes (Other)
  Sender: FDA-Public Use
  Company Number: US-JNJFOC-20120707562

PATIENT
  Age: 73 Year
  Sex: Male

DRUGS (7)
  1. REMICADE [Suspect]
     Indication: CROHN'S DISEASE
     Dosage: 3RD DOSE
     Route: 042
     Dates: start: 20120629
  2. MERCAPTOPURINE [Concomitant]
     Route: 065
  3. STATIN MEDICATION [Concomitant]
     Route: 065
  4. REMICADE [Suspect]
     Route: 042
     Dates: start: 20120101
  5. LIALDA [Concomitant]
     Route: 065
  6. TOPROL-XL [Concomitant]
     Route: 065
  7. PREDNISONE [Concomitant]
     Route: 065
     Dates: end: 20120101

REACTIONS (1)
  - PROSTATE CANCER METASTATIC [None]
